FAERS Safety Report 14094474 (Version 1)
Quarter: 2017Q4

REPORT INFORMATION
  Report Type: Spontaneous
  Country: HR (occurrence: HR)
  Receive Date: 20171016
  Receipt Date: 20171016
  Transmission Date: 20180321
  Serious: Yes (Life-Threatening)
  Sender: FDA-Public Use
  Company Number: HR-PFIZER INC-2017440400

PATIENT
  Age: 16 Year
  Sex: Female

DRUGS (3)
  1. HELEX [Suspect]
     Active Substance: ALPRAZOLAM
     Dosage: 4 DF (1 DF= 1 TBL)
     Route: 048
     Dates: start: 20170822, end: 20170822
  2. SERTRALINE HCL [Suspect]
     Active Substance: SERTRALINE HYDROCHLORIDE
     Dosage: 12 DF (1 DF= 1 TBL)
     Route: 048
     Dates: start: 20170822, end: 20170822
  3. QUETIAPIN [Suspect]
     Active Substance: QUETIAPINE
     Dosage: 4 DF (1 DF= 1 TBL)
     Route: 048
     Dates: start: 20170822, end: 20170822

REACTIONS (3)
  - Intentional overdose [Unknown]
  - Suicide attempt [Unknown]
  - Somnolence [Unknown]

NARRATIVE: CASE EVENT DATE: 20170822
